FAERS Safety Report 16248361 (Version 3)
Quarter: 2019Q2

REPORT INFORMATION
  Report Type: Report from Study
  Country: JP (occurrence: JP)
  Receive Date: 20190429
  Receipt Date: 20190604
  Transmission Date: 20190711
  Serious: Yes (Hospitalization)
  Sender: FDA-Public Use
  Company Number: JP-CONCORDIA PHARMACEUTICALS INC.-E2B_00019549

PATIENT
  Age: 84 Year
  Sex: Male

DRUGS (10)
  1. LINZESS [Concomitant]
     Active Substance: LINACLOTIDE
     Dosage: DOSE AND FREQUENCY UNKNOWN
  2. HERBAL NOS [Concomitant]
     Active Substance: HERBALS
  3. ZONISAMIDE. [Suspect]
     Active Substance: ZONISAMIDE
     Indication: DEMENTIA WITH LEWY BODIES
     Route: 048
     Dates: start: 20190402, end: 20190415
  4. ZONISAMIDE. [Suspect]
     Active Substance: ZONISAMIDE
     Indication: PARKINSONISM
  5. CARBOCISTEINE [Concomitant]
     Active Substance: CARBOCYSTEINE
  6. MENESIT [Concomitant]
     Active Substance: CARBIDOPA\LEVODOPA
  7. DOMPERIDONE [Concomitant]
     Active Substance: DOMPERIDONE
  8. SENNOSIDE A + B [Concomitant]
  9. AMLODIPINE BESILATE [Concomitant]
     Active Substance: AMLODIPINE BESYLATE
  10. MOSAPRIDE CITRATE [Concomitant]
     Active Substance: MOSAPRIDE CITRATE

REACTIONS (2)
  - Fall [Unknown]
  - Femoral neck fracture [Unknown]

NARRATIVE: CASE EVENT DATE: 20190415
